FAERS Safety Report 14376515 (Version 4)
Quarter: 2018Q1

REPORT INFORMATION
  Report Type: Report from Study
  Country: US (occurrence: US)
  Receive Date: 20180111
  Receipt Date: 20180206
  Transmission Date: 20180509
  Serious: Yes (Hospitalization, Other)
  Sender: FDA-Public Use
  Company Number: US-TESARO, INC.-US-2017TSO03806

PATIENT

DRUGS (5)
  1. ZEJULA [Suspect]
     Active Substance: NIRAPARIB
     Dosage: 200 MG, QD
     Route: 048
     Dates: start: 20170628, end: 201710
  2. ZEJULA [Suspect]
     Active Substance: NIRAPARIB
     Dosage: 200 MG, QD
     Route: 048
     Dates: end: 20171121
  3. ZEJULA [Suspect]
     Active Substance: NIRAPARIB
     Dosage: UNK
  4. ZEJULA [Suspect]
     Active Substance: NIRAPARIB
     Indication: OVARIAN CANCER
     Dosage: 300 MG, QD
     Route: 048
     Dates: start: 20170520, end: 20170612
  5. ZEJULA [Suspect]
     Active Substance: NIRAPARIB
     Dosage: 100 MG, QD
     Route: 048
     Dates: start: 20171213

REACTIONS (27)
  - Computerised tomogram abnormal [Unknown]
  - Hyponatraemia [Unknown]
  - Gastrointestinal sounds abnormal [Unknown]
  - Abdominal pain [Unknown]
  - Intestinal obstruction [Not Recovered/Not Resolved]
  - Anaemia [Unknown]
  - Kyphosis [Not Recovered/Not Resolved]
  - Haemorrhage [Unknown]
  - Haemoglobin decreased [Not Recovered/Not Resolved]
  - Walking aid user [Not Recovered/Not Resolved]
  - Asthenia [Not Recovered/Not Resolved]
  - Decreased appetite [Not Recovered/Not Resolved]
  - Tachycardia [Unknown]
  - Platelet count decreased [Unknown]
  - Mobility decreased [Unknown]
  - Nausea [Unknown]
  - Vomiting [Unknown]
  - Stomatitis [Unknown]
  - Hypertension [Not Recovered/Not Resolved]
  - Skin ulcer [Unknown]
  - Balance disorder [Unknown]
  - Carbohydrate antigen 125 increased [Unknown]
  - Acute kidney injury [Unknown]
  - Haematocrit decreased [Not Recovered/Not Resolved]
  - Diarrhoea [Unknown]
  - Abdominal discomfort [Unknown]
  - Red blood cell count decreased [Not Recovered/Not Resolved]
